FAERS Safety Report 19493333 (Version 1)
Quarter: 2021Q3

REPORT INFORMATION
  Report Type: Spontaneous
  Country: AT (occurrence: AT)
  Receive Date: 20210705
  Receipt Date: 20210705
  Transmission Date: 20211014
  Serious: Yes (Other)
  Sender: FDA-Public Use
  Company Number: AT-TEVA-2021-AT-1929283

PATIENT
  Age: 73 Year
  Sex: Male

DRUGS (6)
  1. MIRTAZAPIN [Suspect]
     Active Substance: MIRTAZAPINE
     Dosage: 15MILLIGRAM
     Dates: start: 20210427, end: 20210429
  2. TEMESTA (LORAZEPAM) [Suspect]
     Active Substance: LORAZEPAM
     Dosage: 5MILLIGRAM
     Dates: start: 20210419, end: 20210428
  3. IXEL [Suspect]
     Active Substance: MILNACIPRAN HYDROCHLORIDE
     Dosage: 50MILLIGRAM
     Dates: start: 20210426, end: 20210520
  4. IXEL [Suspect]
     Active Substance: MILNACIPRAN HYDROCHLORIDE
     Dosage: 50MILLIGRAM
     Dates: start: 20210416, end: 20210419
  5. MIRTAZAPIN [Suspect]
     Active Substance: MIRTAZAPINE
     Dosage: 30MILLIGRAM
     Dates: start: 20210409, end: 20210426
  6. IXEL [Suspect]
     Active Substance: MILNACIPRAN HYDROCHLORIDE
     Dosage: 100MILLIGRAM
     Dates: start: 20210420, end: 20210425

REACTIONS (1)
  - Urinary hesitation [Recovering/Resolving]

NARRATIVE: CASE EVENT DATE: 20210425
